FAERS Safety Report 4853436-9 (Version None)
Quarter: 2005Q4

REPORT INFORMATION
  Report Type: 
  Country: None (occurrence: None)
  Receive Date: 20051214
  Receipt Date: 20050622
  Transmission Date: 20060501
  Serious: Yes (Death, Life-Threatening, Hospitalization, Other)
  Sender: FDA-Public Use
  Company Number: GB-MERCK-0506GBR00163

PATIENT
  Age: 66 Year
  Sex: Male

DRUGS (9)
  1. ZOCOR [Suspect]
     Route: 048
     Dates: end: 20050610
  2. AMOXICILLIN [Concomitant]
     Route: 065
     Dates: start: 20050131, end: 20050601
  3. CLARITHROMYCIN [Concomitant]
     Route: 065
     Dates: end: 20050602
  4. DICLOFENAC [Concomitant]
     Route: 065
     Dates: start: 20050604, end: 20050609
  5. FUROSEMIDE [Concomitant]
     Route: 065
     Dates: start: 20050608
  6. INSULIN HUMAN, ISOPHANE [Concomitant]
     Route: 065
  7. INSULIN GLARGINE [Concomitant]
     Route: 065
  8. ASPIRIN [Concomitant]
     Route: 065
  9. VALSARTAN [Concomitant]
     Route: 065
     Dates: end: 20050609

REACTIONS (4)
  - CARDIAC FAILURE [None]
  - RENAL FAILURE ACUTE [None]
  - RHABDOMYOLYSIS [None]
  - SEPSIS [None]
